FAERS Safety Report 24278977 (Version 1)
Quarter: 2024Q3

REPORT INFORMATION
  Report Type: Spontaneous
  Country: US (occurrence: None)
  Receive Date: 20240831
  Receipt Date: 20240831
  Transmission Date: 20241016
  Serious: Yes (Life-Threatening, Disabling, Other)
  Sender: Public
  Company Number: None

PATIENT
  Age: 48 Year
  Sex: Female
  Weight: 99.9 kg

DRUGS (5)
  1. OZEMPIC [Suspect]
     Active Substance: SEMAGLUTIDE
     Indication: Insulin resistance
     Dosage: ONCE A WEEK SUBCUTANEOUS?
     Route: 058
     Dates: start: 20240405, end: 20240715
  2. OZEMPIC [Suspect]
     Active Substance: SEMAGLUTIDE
     Indication: Blood cholesterol increased
  3. HYDROXYCHLOROQUINE [Concomitant]
     Active Substance: HYDROXYCHLOROQUINE
  4. NALTREXONE [Concomitant]
     Active Substance: NALTREXONE
  5. LISINOPRIL [Concomitant]
     Active Substance: LISINOPRIL

REACTIONS (6)
  - Stress [None]
  - Heart rate increased [None]
  - Blood pressure increased [None]
  - Therapy cessation [None]
  - Hypoglycaemia [None]
  - Aortic aneurysm [None]

NARRATIVE: CASE EVENT DATE: 20240806
